FAERS Safety Report 9150021 (Version 1)
Quarter: 2013Q1

REPORT INFORMATION
  Report Type: Report from Study
  Country: US (occurrence: US)
  Receive Date: 20130308
  Receipt Date: 20130308
  Transmission Date: 20140127
  Serious: Yes (Hospitalization)
  Sender: FDA-Public Use
  Company Number: US-ABBOTT-13P-163-1056414-00

PATIENT
  Sex: Male
  Weight: 97.61 kg

DRUGS (11)
  1. HUMIRA [Suspect]
     Indication: RHEUMATOID ARTHRITIS
     Dates: start: 2002, end: 201207
  2. ALBUTEROL [Concomitant]
     Indication: ASTHMA
  3. CALCIUM [Concomitant]
     Indication: MINERAL SUPPLEMENTATION
  4. CIMZIA [Concomitant]
     Indication: RHEUMATOID ARTHRITIS
  5. FOLIC ACID [Concomitant]
     Indication: VITAMIN SUPPLEMENTATION
  6. FOSAMAX [Concomitant]
     Indication: OSTEOPOROSIS
  7. METHOTREXATE [Concomitant]
     Indication: RHEUMATOID ARTHRITIS
  8. MVI [Concomitant]
     Indication: VITAMIN SUPPLEMENTATION
  9. NAPROXEN [Concomitant]
     Indication: RHEUMATOID ARTHRITIS
  10. PREDNISONE [Concomitant]
     Indication: RHEUMATOID ARTHRITIS
  11. VITAMIN C [Concomitant]
     Indication: VITAMIN SUPPLEMENTATION

REACTIONS (12)
  - Thymus enlargement [Recovered/Resolved]
  - Incisional hernia [Recovered/Resolved]
  - Postoperative wound infection [Recovered/Resolved]
  - Pyrexia [Recovered/Resolved]
  - Hyperhidrosis [Recovered/Resolved]
  - Feeling abnormal [Recovered/Resolved]
  - Asthma [Recovered/Resolved]
  - Pericardial effusion [Recovered/Resolved]
  - Musculoskeletal stiffness [Recovered/Resolved]
  - Pain [Not Recovered/Not Resolved]
  - Arthralgia [Unknown]
  - Nasopharyngitis [Recovered/Resolved]
